FAERS Safety Report 7752954-3 (Version None)
Quarter: 2011Q3

REPORT INFORMATION
  Report Type: 
  Country: None (occurrence: None)
  Receive Date: 20110913
  Receipt Date: 20110831
  Transmission Date: 20111222
  Serious: Yes (Hospitalization)
  Sender: FDA-Public Use
  Company Number: TCI2011A03774

PATIENT
  Age: 75 Year
  Sex: Male

DRUGS (3)
  1. GRACTIV (SITAGLIPTIN PHOSPHATE) [Concomitant]
  2. AMARYL [Concomitant]
  3. ACTOS [Suspect]
     Indication: DIABETES MELLITUS
     Dosage: 30 MG (30 MG, 1 D), PER ORAL
     Route: 048

REACTIONS (2)
  - PROSTATE CANCER [None]
  - BLADDER TRANSITIONAL CELL CARCINOMA [None]
